FAERS Safety Report 9245235 (Version 1)
Quarter: 2013Q1

REPORT INFORMATION
  Report Type: Spontaneous
  Country: US (occurrence: None)
  Receive Date: 20121130
  Receipt Date: 20121130
  Transmission Date: 20140127
  Serious: Yes (Hospitalization)
  Sender: FDA-Public Use
  Company Number: 338260

PATIENT
  Age: 29 Year
  Sex: Female
  Weight: 68 kg

DRUGS (5)
  1. NOVOLOG [Suspect]
     Indication: TYPE 2 DIABETES MELLITUS
     Dates: end: 20111003
  2. SYNTHROID (LEVOTHYROXINE SODIUM) [Concomitant]
  3. NECON [Concomitant]
  4. MESTRANOL [Concomitant]
  5. NORETHISTERONE [Concomitant]

REACTIONS (1)
  - Diabetic ketoacidosis [None]
